FAERS Safety Report 6344621-8 (Version None)
Quarter: 2009Q4

REPORT INFORMATION
  Report Type: 
  Country: None (occurrence: None)
  Receive Date: 20090903
  Receipt Date: 20090821
  Transmission Date: 20100525
  Serious: Yes (Hospitalization)
  Sender: FDA-Public Use
  Company Number: 230013J09USA

PATIENT
  Age: 47 Year
  Sex: Male

DRUGS (3)
  1. REBIF [Suspect]
     Indication: MULTIPLE SCLEROSIS
     Dosage: 44 MCG, 3 IN 1 WEEKS, SUBCUTANEOUS
     Route: 058
     Dates: start: 20090125
  2. STEROIDS (CORTICOSTEROID NOS) [Suspect]
     Indication: TREMOR
  3. OXYCODONE WITH ACETAMINOPHEN           (OXYCODONE/APAP) [Concomitant]

REACTIONS (6)
  - CONDITION AGGRAVATED [None]
  - INFLUENZA LIKE ILLNESS [None]
  - INJECTION SITE PAIN [None]
  - MULTIPLE SCLEROSIS [None]
  - PERICARDITIS [None]
  - TREMOR [None]
